FAERS Safety Report 9606839 (Version 1)
Quarter: 2013Q4

REPORT INFORMATION
  Report Type: Spontaneous
  Country: US (occurrence: US)
  Receive Date: 20131008
  Receipt Date: 20131008
  Transmission Date: 20140711
  Serious: No
  Sender: FDA-Public Use
  Company Number: US-AMGEN-USASP2013060218

PATIENT
  Age: 77 Year
  Sex: Female

DRUGS (8)
  1. PROLIA [Suspect]
     Indication: OSTEOPOROSIS POSTMENOPAUSAL
     Dosage: UNK
     Route: 065
     Dates: start: 201303
  2. LOTREL [Concomitant]
     Dosage: UNK
     Route: 065
  3. INDERAL [Concomitant]
     Dosage: UNK
     Route: 065
  4. CITRACAL                           /00751520/ [Concomitant]
     Dosage: UNK
     Route: 065
  5. ASPIRIN [Concomitant]
     Dosage: 81 MG, QD
     Route: 065
  6. VITAMIN D3 [Concomitant]
     Dosage: UNK
     Route: 065
  7. FOLBEE [Concomitant]
     Dosage: UNK
     Route: 065
  8. FEXOFENADINE                       /01314202/ [Concomitant]
     Dosage: UNK
     Route: 065

REACTIONS (2)
  - Rash erythematous [Unknown]
  - Arthralgia [Unknown]
